FAERS Safety Report 14239493 (Version 1)
Quarter: 2017Q4

REPORT INFORMATION
  Report Type: Spontaneous
  Country: US (occurrence: None)
  Receive Date: 20171129
  Receipt Date: 20171129
  Transmission Date: 20180321
  Serious: Yes (Other)
  Sender: FDA-Public Use
  Company Number: None

PATIENT
  Age: 68 Year
  Sex: Male
  Weight: 109.9 kg

DRUGS (1)
  1. MINOCYCLINE [Suspect]
     Active Substance: MINOCYCLINE\MINOCYCLINE HYDROCHLORIDE
     Indication: OSTEOMYELITIS CHRONIC
     Route: 048
     Dates: start: 20130425, end: 20161115

REACTIONS (1)
  - Skin hyperpigmentation [None]

NARRATIVE: CASE EVENT DATE: 20130425
